FAERS Safety Report 6987485-1 (Version None)
Quarter: 2010Q3

REPORT INFORMATION
  Report Type: 
  Country: None (occurrence: None)
  Receive Date: 20100916
  Receipt Date: 20100909
  Transmission Date: 20110219
  Serious: Yes (Other)
  Sender: FDA-Public Use
  Company Number: US-GENZYME-FABR-1001558

PATIENT
  Sex: Male
  Weight: 40 kg

DRUGS (1)
  1. FABRAZYME [Suspect]
     Indication: FABRY'S DISEASE
     Dosage: 40 MG, Q2W
     Route: 042
     Dates: start: 20040601, end: 20100606

REACTIONS (1)
  - TERMINAL STATE [None]
